FAERS Safety Report 7510727-0 (Version None)
Quarter: 2011Q2

REPORT INFORMATION
  Report Type: 
  Country: None (occurrence: None)
  Receive Date: 20110530
  Receipt Date: 20110516
  Transmission Date: 20111010
  Serious: Yes (Other)
  Sender: FDA-Public Use
  Company Number: PHHY2011US41542

PATIENT
  Age: 63 Year
  Sex: Male

DRUGS (4)
  1. RECLAST [Suspect]
     Route: 042
  2. NEXIUM [Concomitant]
  3. CRESTOR [Concomitant]
  4. NIASPAN [Concomitant]

REACTIONS (1)
  - HEART VALVE CALCIFICATION [None]
